FAERS Safety Report 20887422 (Version 1)
Quarter: 2022Q2

REPORT INFORMATION
  Report Type: Spontaneous
  Country: CN (occurrence: CN)
  Receive Date: 20220528
  Receipt Date: 20220528
  Transmission Date: 20220721
  Serious: Yes (Other)
  Sender: FDA-Public Use
  Company Number: None

PATIENT
  Age: 69 Year
  Sex: Female

DRUGS (4)
  1. CYCLOPHOSPHAMIDE [Suspect]
     Active Substance: CYCLOPHOSPHAMIDE
     Indication: Breast cancer female
     Dosage: 0.9 G, QD, 0.9% SODIUM CHLORIDE 100ML + CYCLOPHOSPHAMIDE 0.9G
     Route: 041
     Dates: start: 20220303, end: 20220303
  2. DEXTROSE MONOHYDRATE [Suspect]
     Active Substance: DEXTROSE MONOHYDRATE
     Indication: Medication dilution
     Dosage: 100 ML, QD, 5% GLUCOSE 100ML + EPIRUBICIN HYDROCHLORIDE 130MG
     Route: 041
     Dates: start: 20220302, end: 20220303
  3. SODIUM CHLORIDE [Suspect]
     Active Substance: SODIUM CHLORIDE
     Indication: Medication dilution
     Dosage: 100 ML, QD, 0.9% SODIUM CHLORIDE 100ML + CYCLOPHOSPHAMIDE 0.9G
     Route: 041
     Dates: start: 20220303, end: 20220303
  4. EPIRUBICIN HYDROCHLORIDE [Suspect]
     Active Substance: EPIRUBICIN HYDROCHLORIDE
     Indication: Breast cancer female
     Dosage: 130 MG, QD, 5% GLUCOSE 100ML + EPIRUBICIN HYDROCHLORIDE 130MG
     Route: 041
     Dates: start: 20220302, end: 20220303

REACTIONS (2)
  - White blood cell count decreased [Recovering/Resolving]
  - Platelet count decreased [Recovering/Resolving]

NARRATIVE: CASE EVENT DATE: 20220314
